FAERS Safety Report 19827069 (Version 1)
Quarter: 2021Q3

REPORT INFORMATION
  Report Type: Spontaneous
  Country: IN (occurrence: IN)
  Receive Date: 20210914
  Receipt Date: 20210914
  Transmission Date: 20211014
  Serious: Yes (Hospitalization, Other)
  Sender: FDA-Public Use
  Company Number: IN-LUPIN PHARMACEUTICALS INC.-2021-17036

PATIENT
  Age: 65 Year
  Sex: Male

DRUGS (2)
  1. HYDROCORTISONE BUTYRATE. [Suspect]
     Active Substance: HYDROCORTISONE BUTYRATE
     Indication: ASTHMA
     Dosage: 100 MILLIGRAM, QD
     Route: 042
  2. SALBUTAMOL [Concomitant]
     Active Substance: ALBUTEROL
     Indication: ASTHMA
     Dosage: UNK(INHALER SALBUTAMOL (200?400 MCG/DAY) ON ALTERNATE DAYS FOR 2?3 MONTHS EVERY YEAR)

REACTIONS (2)
  - Histoplasmosis [Recovered/Resolved]
  - Infective myositis [Recovered/Resolved]
